FAERS Safety Report 8308409-0 (Version None)
Quarter: 2012Q1

REPORT INFORMATION
  Report Type: 
  Country: None (occurrence: None)
  Receive Date: 20120327
  Receipt Date: 20091105
  Transmission Date: 20120608
  Serious: Yes (Other)
  Sender: FDA-Public Use
  Company Number: PHEH2009US15322

PATIENT
  Age: 62 Year
  Sex: Female

DRUGS (1)
  1. GLEEVEC [Suspect]
     Indication: UTERINE CANCER
     Dosage: 400 MG, QD, ORAL
     Route: 048

REACTIONS (3)
  - TREATMENT NONCOMPLIANCE [None]
  - DEPRESSION [None]
  - DIARRHOEA [None]
